FAERS Safety Report 21379612 (Version 5)
Quarter: 2022Q4

REPORT INFORMATION
  Report Type: Report from Study
  Country: US (occurrence: US)
  Receive Date: 20220927
  Receipt Date: 20221107
  Transmission Date: 20230113
  Serious: Yes (Hospitalization)
  Sender: FDA-Public Use
  Company Number: US-AGIOS-2209US03136

PATIENT
  Age: 31 Year
  Sex: Male
  Weight: 86.168 kg

DRUGS (4)
  1. MITAPIVAT [Suspect]
     Active Substance: MITAPIVAT
     Indication: Hereditary haemolytic anaemia
     Dosage: 50 MILLIGRAM, BID
     Route: 048
     Dates: start: 20220622
  2. MITAPIVAT [Suspect]
     Active Substance: MITAPIVAT
     Dosage: 5 MILLIGRAM, BID
     Route: 048
     Dates: start: 20220623
  3. MITAPIVAT [Suspect]
     Active Substance: MITAPIVAT
     Dosage: 20 MILLIGRAM, BID
     Route: 048
     Dates: start: 20220721
  4. MITAPIVAT [Suspect]
     Active Substance: MITAPIVAT
     Dosage: 50 MILLIGRAM, BID
     Route: 048
     Dates: start: 20220812

REACTIONS (6)
  - Haemoglobin decreased [Unknown]
  - Therapy non-responder [Unknown]
  - Fatigue [Recovered/Resolved]
  - Dyspnoea [Recovered/Resolved]
  - Chest pain [Recovered/Resolved]
  - Anaemia [Recovered/Resolved]

NARRATIVE: CASE EVENT DATE: 20220914
